FAERS Safety Report 7528937-5 (Version None)
Quarter: 2011Q2

REPORT INFORMATION
  Report Type: 
  Country: None (occurrence: None)
  Receive Date: 20110607
  Receipt Date: 20110524
  Transmission Date: 20111010
  Serious: Yes (Other)
  Sender: FDA-Public Use
  Company Number: PHHY2011US19265

PATIENT
  Sex: Female
  Weight: 58.957 kg

DRUGS (17)
  1. ALLOPURINOL [Concomitant]
  2. BENICAR [Concomitant]
  3. INNOPRAN [Concomitant]
  4. AMITRIPTYLINE HCL [Concomitant]
  5. TASIGNA [Suspect]
     Indication: CHRONIC LYMPHOCYTIC LEUKAEMIA
     Dosage: 400 MG, Q12 HRS
     Route: 048
     Dates: start: 20110114
  6. BIOTIN [Concomitant]
  7. CALCIUM CARBONATE [Concomitant]
  8. SLOW FE [Concomitant]
  9. TASIGNA [Suspect]
     Dosage: 150 MG, Q 12 HRS
     Route: 048
  10. LOVAZA [Concomitant]
  11. TYLENOL-500 [Concomitant]
  12. GLUCOSAMINE [Concomitant]
  13. TASIGNA [Suspect]
     Dosage: 200 MG, BID
     Route: 048
     Dates: start: 20110302
  14. ALPRAZOLAM [Concomitant]
  15. PREMARIN [Concomitant]
  16. UROGESIC BLUE [Concomitant]
  17. CENTRUM SILVER [Concomitant]

REACTIONS (4)
  - WHITE BLOOD CELL COUNT DECREASED [None]
  - BLOOD MAGNESIUM DECREASED [None]
  - RASH [None]
  - PRURITUS [None]
